FAERS Safety Report 5296223-2 (Version None)
Quarter: 2007Q2

REPORT INFORMATION
  Report Type: 
  Country: None (occurrence: None)
  Receive Date: 20070413
  Receipt Date: 20070412
  Transmission Date: 20071010
  Serious: Yes (Hospitalization)
  Sender: FDA-Public Use
  Company Number: FR-GLAXOSMITHKLINE-B0465735A

PATIENT
  Age: 2 Month
  Sex: Male
  Weight: 4 kg

DRUGS (11)
  1. VENTOLIN [Suspect]
     Indication: RESPIRATORY DISTRESS
     Route: 055
     Dates: start: 20070208
  2. RIFAMPICIN [Concomitant]
     Indication: TUBERCULOSIS
     Dosage: 70MG PER DAY
     Route: 048
  3. ISONIAZID [Concomitant]
     Indication: TUBERCULOSIS
     Dosage: 9MG PER DAY
     Route: 048
  4. PYRAZINAMIDE [Concomitant]
     Indication: TUBERCULOSIS
     Dosage: 70MG PER DAY
     Route: 048
  5. CLAFORAN [Concomitant]
     Dates: start: 20070204
  6. UVESTEROL [Concomitant]
     Dosage: 1UNIT PER DAY
  7. OMEPRAZOLE [Concomitant]
     Dosage: 5MG PER DAY
  8. VENTILATION [Concomitant]
     Indication: RESPIRATORY DISTRESS
  9. NITRIC OXIDE [Concomitant]
  10. OXYGEN [Concomitant]
     Dates: start: 20070204
  11. FLUID LOAD [Concomitant]
     Dates: start: 20070204

REACTIONS (11)
  - APNOEA [None]
  - CYANOSIS [None]
  - DYSPNOEA [None]
  - HYPOTHERMIA [None]
  - HYPOXIA [None]
  - MALAISE [None]
  - OXYGEN SATURATION DECREASED [None]
  - PULMONARY FIBROSIS [None]
  - SUPERINFECTION [None]
  - VIRAL INFECTION [None]
  - VOMITING [None]
